FAERS Safety Report 9033000 (Version 1)
Quarter: 2013Q1

REPORT INFORMATION
  Report Type: Spontaneous
  Country: US (occurrence: US)
  Receive Date: 20130128
  Receipt Date: 20130128
  Transmission Date: 20140127
  Serious: Yes (Hospitalization)
  Sender: FDA-Public Use
  Company Number: US-BAYER-2013-008255

PATIENT
  Age: 37 Year
  Sex: Female
  Weight: 79.37 kg

DRUGS (7)
  1. YAZ [Suspect]
  2. ZOLOFT [Concomitant]
     Indication: DEPRESSION
     Dosage: 50 MG, DAILY
     Dates: start: 20110526
  3. PERCOCET [Concomitant]
     Indication: PAIN
     Dosage: 1 TABLET EVERY 4-6 HOURS AS NEEDED
  4. VICODIN [Concomitant]
     Indication: MUSCULOSKELETAL CHEST PAIN
  5. VICODIN [Concomitant]
     Indication: BACK PAIN
  6. TYLENOL [Concomitant]
     Indication: HEADACHE
     Dosage: 650 MG, UNK
  7. NORCO [Concomitant]
     Indication: PAIN MANAGEMENT

REACTIONS (1)
  - Pulmonary embolism [Recovered/Resolved]
